FAERS Safety Report 14746889 (Version 1)
Quarter: 2018Q2

REPORT INFORMATION
  Report Type: Spontaneous
  Country: US (occurrence: US)
  Receive Date: 20180405
  Receipt Date: 20180405
  Transmission Date: 20180711
  Serious: No
  Sender: FDA-Public Use
  Company Number: None

PATIENT

DRUGS (2)
  1. CLOBETASOL [Suspect]
     Active Substance: CLOBETASOL
  2. TEMOVATE [Suspect]
     Active Substance: CLOBETASOL PROPIONATE

REACTIONS (1)
  - Drug ineffective [None]
